FAERS Safety Report 20449894 (Version 1)
Quarter: 2022Q1

REPORT INFORMATION
  Report Type: Spontaneous
  Country: US (occurrence: None)
  Receive Date: 20220209
  Receipt Date: 20220209
  Transmission Date: 20220424
  Serious: No
  Sender: FDA-Public Use
  Company Number: None

PATIENT
  Sex: Female

DRUGS (1)
  1. ENBREL [Suspect]
     Active Substance: ETANERCEPT
     Indication: Behcet^s syndrome
     Dosage: FREQUENCY : 3 TIMES A WEEK;?
     Route: 058

REACTIONS (4)
  - Movement disorder [None]
  - Dysphagia [None]
  - Nervous system disorder [None]
  - Hypoaesthesia [None]
